FAERS Safety Report 23652419 (Version 1)
Quarter: 2024Q1

REPORT INFORMATION
  Report Type: Spontaneous
  Country: CA (occurrence: CA)
  Receive Date: 20240320
  Receipt Date: 20240320
  Transmission Date: 20240409
  Serious: Yes (Life-Threatening)
  Sender: FDA-Public Use
  Company Number: CA-TEVA-VS-3170541

PATIENT
  Age: 12 Year
  Sex: Male

DRUGS (3)
  1. METHOTREXATE [Suspect]
     Active Substance: METHOTREXATE
     Dosage: DOSE FORM: NOT SPECIFIED
     Route: 042
  2. DOXORUBICIN [Suspect]
     Active Substance: DOXORUBICIN
     Dosage: FREQUENCY: ONCE
     Route: 042
  3. PREDNISONE [Suspect]
     Active Substance: PREDNISONE
     Dosage: DOSE FORM: NOT SPECIFIED
     Route: 048

REACTIONS (1)
  - Febrile neutropenia [Recovered/Resolved]
